FAERS Safety Report 8699793 (Version 2)
Quarter: 2013Q3

REPORT INFORMATION
  Report Type: Spontaneous
  Country: US (occurrence: US)
  Receive Date: 20120802
  Receipt Date: 20130809
  Transmission Date: 20140515
  Serious: No
  Sender: FDA-Public Use
  Company Number: US-ASTRAZENECA-2012SE50534

PATIENT
  Age: 38 Year
  Sex: Male
  Weight: 93 kg

DRUGS (4)
  1. SEROQUEL [Suspect]
     Indication: SLEEP DISORDER
     Route: 048
     Dates: start: 2008
  2. SEROQUEL [Suspect]
     Indication: ANXIETY
     Route: 048
     Dates: start: 2008
  3. LAMICTAL [Concomitant]
  4. AMBIEN [Concomitant]
     Indication: SLEEP DISORDER

REACTIONS (3)
  - Memory impairment [Unknown]
  - Off label use [Unknown]
  - Drug ineffective for unapproved indication [Unknown]
